FAERS Safety Report 4508851-X (Version None)
Quarter: 2004Q4

REPORT INFORMATION
  Report Type: 
  Country: None (occurrence: None)
  Receive Date: 20041122
  Receipt Date: 20041122
  Transmission Date: 20050328
  Serious: Yes (Hospitalization)
  Sender: FDA-Public Use
  Company Number: None

PATIENT
  Age: 85 Year
  Sex: Male
  Weight: 69.4 kg

DRUGS (23)
  1. DIGOXIN [Suspect]
     Indication: ATRIAL FIBRILLATION
     Dosage: 0.125 MG , 0.125 MG , ORAL
     Route: 048
  2. METOPROLOL TARTRATE [Concomitant]
  3. FUROSEMIDE [Concomitant]
  4. TERAZOSIN HCL [Concomitant]
  5. COUMADIN [Concomitant]
  6. LORATADINE [Concomitant]
  7. MONTELUKAST NA [Concomitant]
  8. THEOPHYLLINE (QUIALITEST) [Concomitant]
  9. TRAZODONE HCL [Concomitant]
  10. GG 600/PSEUDOEPHEDRINE [Concomitant]
  11. GUAIFENESIN [Concomitant]
  12. SENNOSIDES [Concomitant]
  13. DILTIAZEM (INWOOD) [Concomitant]
  14. DEXAMETHASONE 0.1%/NEO.POLYMX OPH OINT [Concomitant]
  15. ARTIFICIAL TEARS POLYVINYL ALCOHOL [Concomitant]
  16. ASPIRIN [Concomitant]
  17. BUSPIRONE HCL [Concomitant]
  18. SODIUM CHLORIDE NASAL SPRAY [Concomitant]
  19. ALBUTEROL 90/IPRATROP INH [Concomitant]
  20. OMEPRAZOLE [Concomitant]
  21. FLUTICASONE PROP [Concomitant]
  22. FLUNISOLIDE [Concomitant]
  23. PREDNISOLONE ACETATE [Concomitant]

REACTIONS (1)
  - DRUG TOXICITY [None]
